FAERS Safety Report 18391849 (Version 2)
Quarter: 2021Q2

REPORT INFORMATION
  Report Type: Spontaneous
  Country: US (occurrence: US)
  Receive Date: 20201016
  Receipt Date: 20210405
  Transmission Date: 20210717
  Serious: Yes (Other)
  Sender: FDA-Public Use
  Company Number: US-TEVA-2020-US-1838535

PATIENT
  Age: 60 Year
  Sex: Male
  Weight: 134.84 kg

DRUGS (13)
  1. LOTRISONE [Concomitant]
     Active Substance: BETAMETHASONE DIPROPIONATE\CLOTRIMAZOLE
     Route: 061
  2. ATENOLOL/CHLORTHALIDONE [Concomitant]
     Active Substance: ATENOLOL\CHLORTHALIDONE
     Indication: HYPERTENSION
     Dosage: 50/25 MG
     Dates: start: 20130427, end: 20150630
  3. CLARITIN [Concomitant]
     Active Substance: LORATADINE
     Dosage: AS NEEDED
     Route: 048
  4. CIALIS [Concomitant]
     Active Substance: TADALAFIL
  5. EXFORGE [Concomitant]
     Active Substance: AMLODIPINE BESYLATE\VALSARTAN
     Indication: HYPERTENSION
     Dosage: 5?320 MG
     Route: 048
  6. AMLODIPINE/VALSARTAN TEVA [Suspect]
     Active Substance: AMLODIPINE\VALSARTAN
     Dosage: 5?320MG
     Route: 065
     Dates: start: 20161110, end: 20180620
  7. AMLODIPINE/VALSARTAN TEVA [Suspect]
     Active Substance: AMLODIPINE\VALSARTAN
     Indication: HYPERTENSION
     Dosage: 5?320MG
     Route: 048
     Dates: start: 20151017, end: 20160815
  8. VIAGRA [Concomitant]
     Active Substance: SILDENAFIL CITRATE
     Indication: ERECTILE DYSFUNCTION
     Dates: start: 20130311, end: 20141107
  9. TENORMIN [Concomitant]
     Active Substance: ATENOLOL
     Route: 048
  10. HYGROTEN [Concomitant]
     Route: 048
  11. AMLODIPINE/VALSARTAN PAR [Suspect]
     Active Substance: AMLODIPINE\VALSARTAN
     Indication: HYPERTENSION
     Dosage: 5?320MG
     Route: 065
     Dates: start: 20141011, end: 20150702
  12. AMLODIPINE/VALSARTAN AUROBINDO [Suspect]
     Active Substance: AMLODIPINE\VALSARTAN
     Indication: HYPERTENSION
     Dosage: 5?320 MG
     Route: 048
     Dates: start: 20181011, end: 20190813
  13. DICLOFENAC SODIUM. [Concomitant]
     Active Substance: DICLOFENAC SODIUM
     Indication: PAIN
     Route: 048

REACTIONS (1)
  - Prostate cancer [Unknown]
